FAERS Safety Report 18480151 (Version 1)
Quarter: 2020Q4

REPORT INFORMATION
  Report Type: Spontaneous
  Country: US (occurrence: US)
  Receive Date: 20201109
  Receipt Date: 20201109
  Transmission Date: 20210114
  Serious: No
  Sender: FDA-Public Use
  Company Number: None

PATIENT
  Age: 69 Year
  Sex: Female

DRUGS (31)
  1. REMDESIVIR. [Suspect]
     Active Substance: REMDESIVIR
     Indication: COVID-19
     Dates: start: 20200630, end: 20200709
  2. THIAMINE. [Concomitant]
     Active Substance: THIAMINE
  3. DOPAMINE [Concomitant]
     Active Substance: DOPAMINE HYDROCHLORIDE
  4. VANCOMYCIN [Concomitant]
     Active Substance: VANCOMYCIN
  5. MILK OF MAGNESIA [Concomitant]
     Active Substance: MAGNESIUM HYDROXIDE
  6. LEVOPHED [Concomitant]
     Active Substance: NOREPINEPHRINE BITARTRATE
  7. FAMOTIDINE. [Concomitant]
     Active Substance: FAMOTIDINE
  8. DULCOLAX NOS [Concomitant]
     Active Substance: BISACODYL OR DOCUSATE SODIUM
  9. VALIUM [Concomitant]
     Active Substance: DIAZEPAM
  10. SOLU-MEDROL [Concomitant]
     Active Substance: METHYLPREDNISOLONE SODIUM SUCCINATE
  11. ATORVASTATIN [Concomitant]
     Active Substance: ATORVASTATIN
  12. PROPOFOL. [Concomitant]
     Active Substance: PROPOFOL
  13. REGLAN [Concomitant]
     Active Substance: METOCLOPRAMIDE HYDROCHLORIDE
  14. THIAMINE. [Concomitant]
     Active Substance: THIAMINE
  15. SYMBICORT [Concomitant]
     Active Substance: BUDESONIDE\FORMOTEROL FUMARATE DIHYDRATE
  16. ROBITUSSIN AC [Concomitant]
  17. LANTUS [Concomitant]
     Active Substance: INSULIN GLARGINE
  18. LOVENOX [Concomitant]
     Active Substance: ENOXAPARIN SODIUM
  19. MIRALAX [Concomitant]
     Active Substance: POLYETHYLENE GLYCOL 3350
  20. CEFTRIAXONE. [Concomitant]
     Active Substance: CEFTRIAXONE
  21. DIAMOX SEQUELS [Concomitant]
     Active Substance: ACETAZOLAMIDE
  22. VASOPRESSIN. [Concomitant]
     Active Substance: VASOPRESSIN
  23. INSULIN [Concomitant]
     Active Substance: INSULIN NOS
  24. ASCORBIC ACID. [Concomitant]
     Active Substance: ASCORBIC ACID
  25. LEVOTHYROXINE. [Concomitant]
     Active Substance: LEVOTHYROXINE
  26. ZINC SULFATE. [Concomitant]
     Active Substance: ZINC SULFATE
  27. FENTANYL. [Concomitant]
     Active Substance: FENTANYL
  28. SENOKOT [Concomitant]
     Active Substance: SENNOSIDES
  29. CEFEPIME [Concomitant]
     Active Substance: CEFEPIME HYDROCHLORIDE
  30. METFORMIN [Concomitant]
     Active Substance: METFORMIN HYDROCHLORIDE
  31. MIDAZOLAM. [Concomitant]
     Active Substance: MIDAZOLAM

REACTIONS (7)
  - Acute kidney injury [None]
  - Lymphadenopathy [None]
  - Multiple organ dysfunction syndrome [None]
  - Hepatic steatosis [None]
  - Alanine aminotransferase increased [None]
  - Aspartate aminotransferase increased [None]
  - Ischaemic hepatitis [None]
